FAERS Safety Report 22520403 (Version 1)
Quarter: 2023Q2

REPORT INFORMATION
  Report Type: Spontaneous
  Country: US (occurrence: None)
  Receive Date: 20230602
  Receipt Date: 20230602
  Transmission Date: 20230721
  Serious: Yes (Hospitalization)
  Sender: FDA-Public Use
  Company Number: None

PATIENT
  Sex: Male

DRUGS (1)
  1. FORTEO [Suspect]
     Active Substance: TERIPARATIDE
     Indication: Osteoporosis
     Dosage: OTHER STRENGTH : 250 MCG/ML;?FREQUENCY : DAILY;?
     Route: 058
     Dates: start: 202304

REACTIONS (3)
  - Hepatic enzyme increased [None]
  - Gallbladder disorder [None]
  - Therapy interrupted [None]
